FAERS Safety Report 20147387 (Version 1)
Quarter: 2021Q4

REPORT INFORMATION
  Report Type: Spontaneous
  Country: US (occurrence: US)
  Receive Date: 20211203
  Receipt Date: 20211203
  Transmission Date: 20220304
  Serious: No
  Sender: FDA-Public Use
  Company Number: US-SA-SAC20211127000240

PATIENT
  Age: 71 Year
  Sex: Female

DRUGS (3)
  1. DUPIXENT [Suspect]
     Active Substance: DUPILUMAB
     Indication: Skin cancer
     Dosage: UNK, 1X
     Dates: start: 20211109, end: 20211109
  2. PRAVASTATIN [Concomitant]
     Active Substance: PRAVASTATIN
  3. MONTELUKAST [Concomitant]
     Active Substance: MONTELUKAST SODIUM

REACTIONS (8)
  - Injection site rash [Unknown]
  - Rash macular [Unknown]
  - Injection site pruritus [Unknown]
  - Injection site warmth [Unknown]
  - Blister [Unknown]
  - Skin reaction [Unknown]
  - Hypersensitivity [Unknown]
  - Product use in unapproved indication [Unknown]

NARRATIVE: CASE EVENT DATE: 20211101
